FAERS Safety Report 5797875-0 (Version None)
Quarter: 2008Q3

REPORT INFORMATION
  Report Type: 
  Country: None (occurrence: None)
  Receive Date: 20080702
  Receipt Date: 20080630
  Transmission Date: 20090109
  Serious: Yes (Life-Threatening)
  Sender: FDA-Public Use
  Company Number: JP-BAYER-200711082BYL

PATIENT
  Age: 93 Year
  Sex: Male
  Weight: 40 kg

DRUGS (8)
  1. AVELOX [Suspect]
     Indication: PNEUMONIA
     Dosage: TOTAL DAILY DOSE: 400 MG  UNIT DOSE: 400 MG
     Route: 048
     Dates: start: 20071128, end: 20071206
  2. CARDENALIN [Concomitant]
     Indication: HYPERTENSION
     Dosage: TOTAL DAILY DOSE: 2 MG  UNIT DOSE: 2 MG
     Route: 048
  3. CANDESARTAN CILEXETIL [Concomitant]
     Indication: HYPERTENSION
     Dosage: TOTAL DAILY DOSE: 8 MG  UNIT DOSE: 8 MG
     Route: 048
  4. ASPIRIN [Concomitant]
     Indication: MYOCARDIAL INFARCTION
     Dosage: TOTAL DAILY DOSE: 100 MG  UNIT DOSE: 100 MG
     Route: 048
  5. GASLON [Concomitant]
     Indication: GASTRIC ULCER
     Dosage: TOTAL DAILY DOSE: 2 MG  UNIT DOSE: 2 MG
     Route: 048
  6. KYORIN AP 2 [Concomitant]
     Indication: PNEUMONIA
     Dosage: TOTAL DAILY DOSE: 1.5 G  UNIT DOSE: 0.5 G
     Route: 048
     Dates: start: 20071128, end: 20071206
  7. COLDRIN [Concomitant]
     Indication: PNEUMONIA
     Dosage: TOTAL DAILY DOSE: 1.5 G  UNIT DOSE: 0.5 G
     Route: 048
     Dates: start: 20071128, end: 20071206
  8. DASEN [Concomitant]
     Indication: PNEUMONIA
     Dosage: TOTAL DAILY DOSE: 15 MG  UNIT DOSE: 5 MG
     Route: 048
     Dates: start: 20071128, end: 20071206

REACTIONS (2)
  - LONG QT SYNDROME [None]
  - VENTRICULAR TACHYCARDIA [None]
